FAERS Safety Report 5068268-9 (Version None)
Quarter: 2006Q3

REPORT INFORMATION
  Report Type: 
  Country: None (occurrence: None)
  Receive Date: 20060802
  Receipt Date: 20050705
  Transmission Date: 20061208
  Serious: Yes (Hospitalization)
  Sender: FDA-Public Use
  Company Number: US-BRISTOL-MYERS SQUIBB COMPANY-13026208

PATIENT
  Sex: Male

DRUGS (1)
  1. COUMADIN [Suspect]
     Dosage: 5 MG DAILY AND 7.5 MG TWICE PER WEEK = 40 MG PER WEEK; DURATION = YEARS
     Route: 048

REACTIONS (2)
  - HAEMATURIA [None]
  - URINARY BLADDER HAEMORRHAGE [None]
